FAERS Safety Report 22517727 (Version 1)
Quarter: 2023Q2

REPORT INFORMATION
  Report Type: Spontaneous
  Country: US (occurrence: None)
  Receive Date: 20230604
  Receipt Date: 20230604
  Transmission Date: 20230722
  Serious: No
  Sender: FDA-Public Use
  Company Number: 2023A123309

PATIENT
  Age: 26836 Day
  Sex: Female

DRUGS (1)
  1. BREZTRI [Suspect]
     Active Substance: BUDESONIDE\FORMOTEROL\GLYCOPYRROLATE
     Route: 055

REACTIONS (3)
  - Candida infection [Not Recovered/Not Resolved]
  - Device use issue [Not Recovered/Not Resolved]
  - Device delivery system issue [Unknown]

NARRATIVE: CASE EVENT DATE: 20230415
